FAERS Safety Report 16997126 (Version 1)
Quarter: 2019Q4

REPORT INFORMATION
  Report Type: Spontaneous
  Country: US (occurrence: US)
  Receive Date: 20190924
  Receipt Date: 20190924
  Transmission Date: 20200122
  Serious: Yes (Hospitalization)
  Sender: FDA-Public Use
  Company Number: None

PATIENT
  Age: 49 Year
  Sex: Male

DRUGS (8)
  1. ATORVASTATIN [Concomitant]
     Active Substance: ATORVASTATIN
  2. CEPHALEXIN. [Concomitant]
     Active Substance: CEPHALEXIN
  3. MODAFINIL. [Concomitant]
     Active Substance: MODAFINIL
  4. LEVOFLOXACIN. [Concomitant]
     Active Substance: LEVOFLOXACIN
  5. ARMODAFINIL. [Concomitant]
     Active Substance: ARMODAFINIL
  6. MAVENCLAD [Suspect]
     Active Substance: CLADRIBINE
     Indication: MULTIPLE SCLEROSIS
     Route: 048
     Dates: start: 20190727
  7. VITAMIN D [Concomitant]
     Active Substance: VITAMIN D NOS
  8. BACLOFEN. [Concomitant]
     Active Substance: BACLOFEN

REACTIONS (4)
  - Headache [None]
  - Back pain [None]
  - Dysphagia [None]
  - Asthenia [None]

NARRATIVE: CASE EVENT DATE: 20190922
